FAERS Safety Report 18499342 (Version 1)
Quarter: 2020Q4

REPORT INFORMATION
  Report Type: Spontaneous
  Country: CN (occurrence: CN)
  Receive Date: 20201113
  Receipt Date: 20201113
  Transmission Date: 20210114
  Serious: Yes (Hospitalization)
  Sender: FDA-Public Use
  Company Number: CN-PFIZER INC-2020445577

PATIENT
  Age: 3 Year
  Sex: Male
  Weight: 18.9 kg

DRUGS (1)
  1. CYTOSAR [Suspect]
     Active Substance: CYTARABINE
     Indication: ACUTE LYMPHOCYTIC LEUKAEMIA
     Dosage: 0.07 G, 1X/DAY
     Route: 041
     Dates: start: 20201012, end: 20201023

REACTIONS (4)
  - Cough [Recovering/Resolving]
  - Transaminases increased [Recovering/Resolving]
  - Myelosuppression [Recovering/Resolving]
  - Nausea [Recovering/Resolving]

NARRATIVE: CASE EVENT DATE: 20201014
